FAERS Safety Report 15027719 (Version 2)
Quarter: 2018Q2

REPORT INFORMATION
  Report Type: Spontaneous
  Country: US (occurrence: US)
  Receive Date: 20180619
  Receipt Date: 20180620
  Transmission Date: 20180711
  Serious: No
  Sender: FDA-Public Use
  Company Number: US-PFIZER INC-2018243089

PATIENT
  Age: 7 Month
  Sex: Female
  Weight: 6.35 kg

DRUGS (11)
  1. AMOXICILLIN. [Suspect]
     Active Substance: AMOXICILLIN
     Dosage: UNK
     Route: 048
  2. IRON [Concomitant]
     Active Substance: IRON
     Dosage: UNK
  3. GABAPENTIN. [Suspect]
     Active Substance: GABAPENTIN
     Indication: MUSCLE SPASMS
     Dosage: 2.5 ML, 3X/DAY
     Route: 048
  4. GABAPENTIN. [Suspect]
     Active Substance: GABAPENTIN
     Indication: PAIN MANAGEMENT
  5. MORPHINE SULFATE. [Suspect]
     Active Substance: MORPHINE SULFATE
     Indication: DYSPNOEA
  6. DIAZEPAM. [Suspect]
     Active Substance: DIAZEPAM
     Dosage: UNK
     Route: 048
  7. LORAZEPAM. [Suspect]
     Active Substance: LORAZEPAM
     Indication: POSTURING
  8. RANITIDINE HYDROCHLORIDE. [Suspect]
     Active Substance: RANITIDINE HYDROCHLORIDE
     Dosage: UNK
     Route: 048
  9. GLYCOPYRROLATE. [Suspect]
     Active Substance: GLYCOPYRROLATE
     Indication: SECRETION DISCHARGE
     Dosage: 0.2 ML, AS NEEDED (NEEDED FOR SECRETIONS)
     Route: 048
  10. LORAZEPAM. [Suspect]
     Active Substance: LORAZEPAM
     Indication: DYSTONIA
     Dosage: 3 ML, 1X/DAY
     Route: 048
  11. MORPHINE SULFATE. [Suspect]
     Active Substance: MORPHINE SULFATE
     Indication: PAIN
     Dosage: UNK UNK, AS NEEDED (16 QUANTITY AS NEEDED)
     Route: 048

REACTIONS (5)
  - Product taste abnormal [Unknown]
  - Nausea [Unknown]
  - Drug administered to patient of inappropriate age [Unknown]
  - Eructation [Unknown]
  - Discomfort [Unknown]
